FAERS Safety Report 16178834 (Version 1)
Quarter: 2019Q2

REPORT INFORMATION
  Report Type: Other
  Country: US (occurrence: US)
  Receive Date: 20190410
  Receipt Date: 20190410
  Transmission Date: 20190711
  Serious: No
  Sender: FDA-Public Use
  Company Number: US-PROVELL PHARMACEUTICALS-2065637

PATIENT
  Age: 16 Year
  Sex: Female

DRUGS (5)
  1. EUTHYROX [Suspect]
     Active Substance: LEVOTHYROXINE SODIUM
     Route: 048
  2. EUTHYROX [Suspect]
     Active Substance: LEVOTHYROXINE SODIUM
     Route: 030
  3. LIOTHYRONINE [Concomitant]
     Active Substance: LIOTHYRONINE
     Route: 048
  4. EUTHYROX [Suspect]
     Active Substance: LEVOTHYROXINE SODIUM
     Route: 030
  5. EUTHYROX [Suspect]
     Active Substance: LEVOTHYROXINE SODIUM
     Indication: HYPOTHYROIDISM
     Route: 048

REACTIONS (2)
  - Drug ineffective [None]
  - Palpitations [Recovered/Resolved]
